FAERS Safety Report 23784531 (Version 4)
Quarter: 2024Q4

REPORT INFORMATION
  Report Type: Report from Study
  Country: US (occurrence: US)
  Receive Date: 20240425
  Receipt Date: 20241017
  Transmission Date: 20250115
  Serious: Yes (Other)
  Sender: ALEXION PHARMACEUTICALS
  Company Number: US-AstraZeneca-CH-00608863A

PATIENT

DRUGS (1)
  1. SOLIRIS [Suspect]
     Active Substance: ECULIZUMAB
     Indication: Atypical haemolytic uraemic syndrome
     Dosage: UNK

REACTIONS (7)
  - Exposure during pregnancy [Unknown]
  - Haemoglobin decreased [Unknown]
  - Blood iron decreased [Not Recovered/Not Resolved]
  - Swelling [Recovering/Resolving]
  - Weight decreased [Unknown]
  - Full blood count abnormal [Unknown]
  - Insurance issue [Not Recovered/Not Resolved]
